FAERS Safety Report 9401554 (Version 1)
Quarter: 2013Q3

REPORT INFORMATION
  Report Type: Not Available
  Country: US (occurrence: US)
  Receive Date: 20130716
  Receipt Date: 20130716
  Transmission Date: 20140515
  Serious: Yes (Other)
  Sender: FDA-Public Use
  Company Number: US-LUPIN PHARMACEUTICALS INC.-2013-01365

PATIENT
  Age: 59 Year
  Sex: Female
  Weight: 61.29 kg

DRUGS (5)
  1. LISINOPRIL TABLETS USP 10 MG [Suspect]
     Indication: DIABETES MELLITUS
     Dosage: 10 MG
     Dates: start: 20130424, end: 20130424
  2. LISINOPRIL TABLETS USP 10 MG [Suspect]
     Indication: HYPERTENSION
  3. AMARYL [Concomitant]
     Indication: DIABETES MELLITUS
     Dosage: 4 MG
  4. ALTACE [Concomitant]
     Indication: DIABETES MELLITUS
     Dosage: 5 MG
  5. ALTACE [Concomitant]
     Indication: HYPERTENSION

REACTIONS (8)
  - Feeling abnormal [Recovered/Resolved]
  - Fall [Recovered/Resolved]
  - Dyspnoea [Recovered/Resolved]
  - Blood potassium decreased [Unknown]
  - Muscular weakness [Not Recovered/Not Resolved]
  - Asthenia [Not Recovered/Not Resolved]
  - Muscular weakness [None]
  - Activities of daily living impaired [None]
